FAERS Safety Report 11086411 (Version 2)
Quarter: 2015Q3

REPORT INFORMATION
  Report Type: Spontaneous
  Country: CA (occurrence: CA)
  Receive Date: 20150504
  Receipt Date: 20150902
  Transmission Date: 20151125
  Serious: Yes (Death, Hospitalization)
  Sender: FDA-Public Use
  Company Number: CA-ROCHE-1570724

PATIENT
  Age: 61 Year
  Sex: Male
  Weight: 74 kg

DRUGS (11)
  1. PEGETRON [Suspect]
     Active Substance: PEGINTERFERON ALFA-2B\RIBAVIRIN
     Indication: HEPATITIS C
     Route: 048
  2. PEGASYS [Suspect]
     Active Substance: PEGINTERFERON ALFA-2A
     Indication: HEPATITIS C
     Dosage: THERAPY DURATION: 2 MONTHS
     Route: 058
  3. SOVALDI [Suspect]
     Active Substance: SOFOSBUVIR
     Indication: HEPATITIS C
     Route: 048
  4. COVERSYL [Concomitant]
     Active Substance: PERINDOPRIL
     Route: 065
  5. METFORMIN [Concomitant]
     Active Substance: METFORMIN HYDROCHLORIDE
     Dosage: AS REQUIRED
     Route: 048
  6. HYDROMORPH CONTIN [Concomitant]
     Active Substance: HYDROMORPHONE
     Indication: NEUROPATHY PERIPHERAL
     Route: 048
  7. IBAVYR [Suspect]
     Active Substance: RIBAVIRIN
     Indication: HEPATITIS C
     Route: 048
  8. FERROUS GLUCONATE [Concomitant]
     Active Substance: FERROUS GLUCONATE
     Route: 048
  9. RIBAVIRIN. [Suspect]
     Active Substance: RIBAVIRIN
     Indication: HEPATITIS C
     Dosage: THERAPY DURATION: 2 MONTHS
     Route: 048
  10. HYDROMORPHONE [Concomitant]
     Active Substance: HYDROMORPHONE
     Indication: NEUROPATHY PERIPHERAL
     Route: 048
  11. TECTA [Concomitant]
     Active Substance: PANTOPRAZOLE MAGNESIUM
     Dosage: ENTERIC COATED
     Route: 065

REACTIONS (19)
  - Pyrexia [Fatal]
  - Septic shock [Fatal]
  - Decreased appetite [Unknown]
  - Headache [Unknown]
  - Insomnia [Unknown]
  - Irritability [Unknown]
  - Malaise [Unknown]
  - Mood swings [Unknown]
  - Thrombocytopenia [Unknown]
  - Myalgia [Unknown]
  - Atrial fibrillation [Fatal]
  - Diabetes mellitus inadequate control [Unknown]
  - Pneumonia [Fatal]
  - Arthralgia [Unknown]
  - Urinary incontinence [Unknown]
  - Hepatic failure [Fatal]
  - Multi-organ failure [Fatal]
  - Fatigue [Unknown]
  - Nausea [Unknown]
